FAERS Safety Report 6135897-0 (Version None)
Quarter: 2009Q1

REPORT INFORMATION
  Report Type: 
  Country: None (occurrence: None)
  Receive Date: 20090327
  Receipt Date: 20090320
  Transmission Date: 20090719
  Serious: Yes (Hospitalization)
  Sender: FDA-Public Use
  Company Number: US-GENENTECH-278581

PATIENT
  Sex: Male
  Weight: 108 kg

DRUGS (10)
  1. BEVACIZUMAB [Suspect]
     Indication: OESOPHAGEAL CARCINOMA
     Dosage: 15 MG/KG, Q3W
     Route: 042
     Dates: start: 20080129, end: 20090217
  2. CAPECITABINE [Suspect]
     Indication: OESOPHAGEAL CARCINOMA
     Dosage: 850 MG/M2, BID
     Route: 048
     Dates: start: 20080129, end: 20080701
  3. CAPECITABINE [Suspect]
     Dosage: 680 MG/M2, BID
     Route: 048
     Dates: start: 20080805, end: 20080918
  4. CAPECITABINE [Suspect]
     Dosage: 544 MG/M2, BID
     Route: 048
     Dates: start: 20081014, end: 20090227
  5. OXALIPLATIN [Suspect]
     Indication: OESOPHAGEAL CARCINOMA
     Dosage: 104 MG/M2, Q3W
     Route: 042
     Dates: start: 20080129
  6. OXALIPLATIN [Suspect]
     Dosage: 130 MG/M2, Q3W
     Route: 042
     Dates: start: 20080206, end: 20081124
  7. OXALIPLATIN [Suspect]
     Dosage: 104 MG/M2, Q3W
     Route: 042
     Dates: start: 20090106, end: 20090106
  8. DIOVAN [Concomitant]
     Indication: HYPERTENSION
     Dosage: 160 MG, QD
     Route: 048
  9. HYDROCHLOROTHIAZIDE [Concomitant]
     Indication: HYPERTENSION
     Dosage: 25 MG, QD
     Route: 048
     Dates: start: 20080214
  10. METFORMIN [Concomitant]
     Indication: TYPE 2 DIABETES MELLITUS
     Dosage: 1000 MG, BID
     Route: 048
     Dates: start: 20080620

REACTIONS (1)
  - DURAL FISTULA [None]
